FAERS Safety Report 17870702 (Version 1)
Quarter: 2020Q2

REPORT INFORMATION
  Report Type: Spontaneous
  Country: NL (occurrence: NL)
  Receive Date: 20200608
  Receipt Date: 20200608
  Transmission Date: 20200714
  Serious: Yes (Other)
  Sender: FDA-Public Use
  Company Number: NVSC2019NL032447

PATIENT
  Age: 62 Year
  Sex: Female

DRUGS (5)
  1. PREDNISONE. [Suspect]
     Active Substance: PREDNISONE
     Dosage: GRADUAL WITHDRAWAL OF PREDNISONE AT THE DOSAGE BELOW 40 MG/DAY
     Route: 065
  2. METHOTREXATE. [Suspect]
     Active Substance: METHOTREXATE
     Indication: SCLERITIS
     Dosage: 15 MG, QW
     Route: 065
  3. PREDNISONE. [Suspect]
     Active Substance: PREDNISONE
     Dosage: 60 MG, QD
     Route: 062
  4. PREDNISONE. [Suspect]
     Active Substance: PREDNISONE
     Dosage: 40 MG, QD (CONTINUED WITH TOCILIZUMAB, AND SLOWLY TAPERED WITHIN THREE MONTHS)
     Route: 062
  5. PREDNISONE. [Suspect]
     Active Substance: PREDNISONE
     Indication: SCLERITIS
     Dosage: 30 MG, QD
     Route: 062

REACTIONS (6)
  - Rebound effect [Recovered/Resolved]
  - Scleritis [Recovered/Resolved]
  - Nausea [Unknown]
  - Product use in unapproved indication [Unknown]
  - Therapy non-responder [Unknown]
  - Arthralgia [Unknown]
